FAERS Safety Report 25942711 (Version 1)
Quarter: 2025Q4

REPORT INFORMATION
  Report Type: Spontaneous
  Country: CN (occurrence: CN)
  Receive Date: 20251021
  Receipt Date: 20251021
  Transmission Date: 20260118
  Serious: Yes (Hospitalization, Other)
  Sender: ROCHE
  Company Number: CN-ROCHE-10000409390

PATIENT
  Age: 68 Year
  Sex: Female

DRUGS (5)
  1. AVASTIN [Suspect]
     Active Substance: BEVACIZUMAB
     Indication: Cervix carcinoma
     Dosage: 21-JUN-2025 AND 11-JUL-2025, RECEIVED THE DOSES AS WELL.
     Route: 042
     Dates: start: 20250823, end: 20250823
  2. PACLITAXEL [Suspect]
     Active Substance: PACLITAXEL
     Indication: Cervix carcinoma
     Dosage: 21-JUN-2025 AND 11-JUL-2025, RECEIVED THE DOSES AS WELL.
     Route: 042
     Dates: start: 20250823, end: 20250823
  3. CARBOPLATIN [Suspect]
     Active Substance: CARBOPLATIN
     Indication: Cervix carcinoma
     Dosage: DAY 1?21-JUN-2025 AND 11-JUL-2025, RECEIVED THE DOSES AS WELL.
     Route: 065
  4. COMPOUND FERROUS SULFATE [Concomitant]
  5. FOLIC ACID [Concomitant]
     Active Substance: FOLIC ACID

REACTIONS (3)
  - Platelet count decreased [Recovering/Resolving]
  - Haemoglobin decreased [Unknown]
  - White blood cell count decreased [Unknown]

NARRATIVE: CASE EVENT DATE: 20250912
